FAERS Safety Report 12906939 (Version 3)
Quarter: 2016Q4

REPORT INFORMATION
  Report Type: Spontaneous
  Country: IT (occurrence: IT)
  Receive Date: 20161103
  Receipt Date: 20161114
  Transmission Date: 20170207
  Serious: Yes (Hospitalization)
  Sender: FDA-Public Use
  Company Number: IT-TEVA-702789ACC

PATIENT
  Age: 38 Year
  Sex: Female

DRUGS (2)
  1. METOPROLOL. [Suspect]
     Active Substance: METOPROLOL
     Indication: EJECTION FRACTION DECREASED
     Dosage: 200 MILLIGRAM DAILY;
     Route: 048
  2. BISOPROLOL [Suspect]
     Active Substance: BISOPROLOL
     Indication: EJECTION FRACTION DECREASED
     Dosage: 20 MILLIGRAM DAILY;
     Route: 048

REACTIONS (5)
  - Drug effect incomplete [Recovering/Resolving]
  - Condition aggravated [Recovering/Resolving]
  - Dyspnoea [Unknown]
  - Ejection fraction decreased [Recovering/Resolving]
  - Ventricular extrasystoles [Unknown]
